FAERS Safety Report 21507247 (Version 4)
Quarter: 2022Q4

REPORT INFORMATION
  Report Type: Spontaneous
  Country: CO (occurrence: CO)
  Receive Date: 20221026
  Receipt Date: 20221215
  Transmission Date: 20230113
  Serious: No
  Sender: FDA-Public Use
  Company Number: CO-PFIZER INC-PV202200067324

PATIENT
  Age: 9 Year
  Sex: Female

DRUGS (1)
  1. GENOTROPIN [Suspect]
     Active Substance: SOMATROPIN
     Dosage: EVERY 24 HOURS
     Route: 058

REACTIONS (5)
  - Product prescribing issue [Unknown]
  - Device failure [Unknown]
  - Device occlusion [Unknown]
  - Drug dose omission by device [Unknown]
  - Wrong technique in device usage process [Unknown]

NARRATIVE: CASE EVENT DATE: 20220927
